FAERS Safety Report 16295347 (Version 4)
Quarter: 2019Q3

REPORT INFORMATION
  Report Type: Report from Study
  Country: None (occurrence: AR)
  Receive Date: 20190509
  Receipt Date: 20190916
  Transmission Date: 20191004
  Serious: Yes (Other)
  Sender: FDA-Public Use
  Company Number: AR-ABBVIE-19K-007-2775432-00

PATIENT
  Sex: Female

DRUGS (2)
  1. ARTRAID [Concomitant]
     Indication: PRODUCT USED FOR UNKNOWN INDICATION
  2. HUMIRA [Suspect]
     Active Substance: ADALIMUMAB
     Indication: RHEUMATOID ARTHRITIS
     Route: 058
     Dates: start: 20150702

REACTIONS (8)
  - Joint neoplasm [Not Recovered/Not Resolved]
  - Joint effusion [Unknown]
  - Peripheral swelling [Not Recovered/Not Resolved]
  - Drug hypersensitivity [Recovering/Resolving]
  - Procedural site reaction [Unknown]
  - Bacterial infection [Not Recovered/Not Resolved]
  - Cyst [Recovering/Resolving]
  - Viral infection [Not Recovered/Not Resolved]

NARRATIVE: CASE EVENT DATE: 2019
